FAERS Safety Report 4675225-0 (Version None)
Quarter: 2005Q2

REPORT INFORMATION
  Report Type: 
  Country: None (occurrence: None)
  Receive Date: 20050526
  Receipt Date: 20050511
  Transmission Date: 20051028
  Serious: Yes (Congenital Anomaly)
  Sender: FDA-Public Use
  Company Number: B0380662A

PATIENT
  Sex: Female

DRUGS (4)
  1. LITHIUM CARBONATE [Suspect]
     Dosage: 900MG/ PER DAY/ TRANSPLACENTARY
     Route: 064
  2. FOLIC ACID [Suspect]
     Dosage: TRANSPLACENTARY
     Route: 064
  3. CALCIUM SALT (CALCIUM SALT) [Suspect]
     Dosage: TRANSPLACENTARY
     Route: 064
  4. IRON SUPPLEMENTS (IRON SUPPLEMENTS) [Suspect]
     Dosage: TRANSPLACENTARY
     Route: 064

REACTIONS (2)
  - ANENCEPHALY [None]
  - DRUG EXPOSURE DURING PREGNANCY [None]
